FAERS Safety Report 14022696 (Version 1)
Quarter: 2017Q3

REPORT INFORMATION
  Report Type: Spontaneous
  Country: US (occurrence: US)
  Receive Date: 20170928
  Receipt Date: 20170928
  Transmission Date: 20171128
  Serious: No
  Sender: FDA-Public Use
  Company Number: US-SA-2016SA170011

PATIENT
  Age: 53 Year
  Sex: Female

DRUGS (5)
  1. CYMBALTA [Concomitant]
     Active Substance: DULOXETINE HYDROCHLORIDE
  2. AUBAGIO [Suspect]
     Active Substance: TERIFLUNOMIDE
     Route: 065
     Dates: start: 20160616, end: 20160807
  3. GABAPENTIN. [Concomitant]
     Active Substance: GABAPENTIN
  4. ZOLPIDEM [Concomitant]
     Active Substance: ZOLPIDEM\ZOLPIDEM TARTRATE
  5. IBANDRONATE SODIUM. [Concomitant]
     Active Substance: IBANDRONATE SODIUM

REACTIONS (2)
  - Alopecia [Not Recovered/Not Resolved]
  - Blood count abnormal [Not Recovered/Not Resolved]
